FAERS Safety Report 18781245 (Version 1)
Quarter: 2021Q1

REPORT INFORMATION
  Report Type: Spontaneous
  Country: US (occurrence: US)
  Receive Date: 20210124
  Receipt Date: 20210124
  Transmission Date: 20210419
  Serious: No
  Sender: FDA-Public Use
  Company Number: None

PATIENT
  Age: 68 Year
  Sex: Female
  Weight: 68.85 kg

DRUGS (4)
  1. PEPCID [Concomitant]
     Active Substance: FAMOTIDINE
  2. VALSARTAN TABLETS USP [Suspect]
     Active Substance: VALSARTAN
     Indication: HYPERTENSION
     Dosage: ?          QUANTITY:1 TABLET(S);?
     Route: 048
     Dates: start: 20201112, end: 20201130
  3. DIOVAN [Concomitant]
     Active Substance: VALSARTAN
  4. SYNTHROID [Concomitant]
     Active Substance: LEVOTHYROXINE SODIUM

REACTIONS (4)
  - Product odour abnormal [None]
  - Product taste abnormal [None]
  - Blood pressure increased [None]
  - Product substitution issue [None]

NARRATIVE: CASE EVENT DATE: 20201112
